FAERS Safety Report 9830771 (Version 2)
Quarter: 2014Q1

REPORT INFORMATION
  Report Type: Report from Study
  Country: MY (occurrence: MY)
  Receive Date: 20140120
  Receipt Date: 20140120
  Transmission Date: 20141002
  Serious: Yes (Hospitalization)
  Sender: FDA-Public Use
  Company Number: MY-MERCK-0910USA00472

PATIENT
  Age: 62 Year
  Sex: Male
  Weight: 88.7 kg

DRUGS (7)
  1. ANACETRAPIB [Suspect]
     Indication: HYPERCHOLESTEROLAEMIA
     Dosage: 100 MG, QD
     Route: 048
     Dates: start: 20080814, end: 20090701
  2. ANACETRAPIB [Suspect]
     Indication: TYPE V HYPERLIPIDAEMIA
     Dosage: 100 MG, QD
     Route: 048
     Dates: start: 20090703, end: 20090917
  3. ANACETRAPIB [Suspect]
     Dosage: 100 MG, QD
     Route: 048
     Dates: start: 20090925
  4. SIMVASTATIN [Suspect]
     Indication: HYPERCHOLESTEROLAEMIA
     Dosage: 20 MG, QD
     Route: 048
     Dates: start: 20080219
  5. ASPIRIN [Suspect]
     Indication: MYOCARDIAL ISCHAEMIA
     Dosage: 150 MG, QD
     Route: 048
     Dates: start: 20080219, end: 20090918
  6. PLAVIX [Suspect]
     Indication: MYOCARDIAL ISCHAEMIA
     Dosage: 75 MG, QD
     Route: 048
     Dates: start: 20080414, end: 20090918
  7. ATENOLOL [Concomitant]
     Indication: MYOCARDIAL ISCHAEMIA
     Dosage: 100 MG, QD
     Route: 048
     Dates: start: 200206

REACTIONS (2)
  - Upper gastrointestinal haemorrhage [Recovered/Resolved]
  - Urinary tract infection [Recovered/Resolved]
